FAERS Safety Report 4752796-7 (Version None)
Quarter: 2005Q3

REPORT INFORMATION
  Report Type: 
  Country: None (occurrence: None)
  Receive Date: 20050823
  Receipt Date: 20050812
  Transmission Date: 20060218
  Serious: Yes (Other)
  Sender: FDA-Public Use
  Company Number: 2004104608

PATIENT
  Sex: Female

DRUGS (4)
  1. NEURONTIN [Suspect]
     Indication: MULTIPLE SCLEROSIS
     Dosage: 1200 MG (400 MG, 3 IN 1 D), ORAL
     Route: 048
  2. ANAFRANIL [Concomitant]
  3. BISOPROLOL FUMARATE [Concomitant]
  4. TOLTERODINE TARTRATE [Concomitant]

REACTIONS (2)
  - INTRA-ABDOMINAL HAEMORRHAGE [None]
  - POST PROCEDURAL HAEMORRHAGE [None]
